FAERS Safety Report 21730782 (Version 1)
Quarter: 2022Q4

REPORT INFORMATION
  Report Type: Report from Study
  Country: BE (occurrence: BE)
  Receive Date: 20221215
  Receipt Date: 20221215
  Transmission Date: 20230112
  Serious: Yes (Death)
  Sender: FDA-Public Use
  Company Number: BE-ABBVIE-4236297

PATIENT
  Sex: Female

DRUGS (6)
  1. CARBIDOPA\LEVODOPA [Suspect]
     Active Substance: CARBIDOPA\LEVODOPA
     Indication: Parkinson^s disease
     Dosage: MD 2.5 ML; CD 3.6 ML/HR DURING 24 HOURS; ED 2.6 ML, CND: 3.3 ML/HR
     Dates: start: 20220317, end: 20220801
  2. CARBIDOPA\LEVODOPA [Suspect]
     Active Substance: CARBIDOPA\LEVODOPA
     Dosage: MD 2.5 ML; CD 3.6 ML/HR DURING 24 HOURS; ED 3.0 ML
     Dates: start: 20220801
  3. BENSERAZIDE\LEVODOPA [Concomitant]
     Active Substance: BENSERAZIDE\LEVODOPA
     Indication: Product used for unknown indication
  4. BENSERAZIDE\LEVODOPA [Concomitant]
     Active Substance: BENSERAZIDE\LEVODOPA
     Indication: Product used for unknown indication
  5. PERMAX [Concomitant]
     Active Substance: PERGOLIDE
     Indication: Product used for unknown indication
  6. PERMAX [Concomitant]
     Active Substance: PERGOLIDE
     Indication: Product used for unknown indication
     Dosage: FORM STRENGTH: 0.25 MG

REACTIONS (1)
  - Death [Fatal]

NARRATIVE: CASE EVENT DATE: 20221201
